FAERS Safety Report 22618760 (Version 1)
Quarter: 2023Q2

REPORT INFORMATION
  Report Type: Spontaneous
  Country: US (occurrence: US)
  Receive Date: 20230620
  Receipt Date: 20230620
  Transmission Date: 20230721
  Serious: Yes (Hospitalization, Other)
  Sender: FDA-Public Use
  Company Number: US-AMGEN-USASP2023102796

PATIENT
  Age: 70 Year
  Sex: Female

DRUGS (6)
  1. IVABRADINE [Suspect]
     Active Substance: IVABRADINE
     Indication: Ventricular tachycardia
     Dosage: 5 MILLIGRAM, BID
     Route: 048
  2. IVABRADINE [Suspect]
     Active Substance: IVABRADINE
     Indication: Cardiogenic shock
     Dosage: 7.5 MILLIGRAM, BID
     Route: 048
  3. IVABRADINE [Suspect]
     Active Substance: IVABRADINE
     Indication: Cardiac sarcoidosis
  4. IVABRADINE [Suspect]
     Active Substance: IVABRADINE
     Indication: Off label use
  5. INFLIXIMAB [Suspect]
     Active Substance: INFLIXIMAB
     Indication: Product used for unknown indication
     Dosage: 5 MILLIGRAM/KILOGRAM
     Route: 042
  6. ACETAZOLAMIDE [Concomitant]
     Active Substance: ACETAZOLAMIDE
     Dosage: UNK
     Route: 042

REACTIONS (5)
  - Ventricular tachycardia [Recovering/Resolving]
  - Myopericarditis [Recovering/Resolving]
  - Cardiac sarcoidosis [Recovering/Resolving]
  - Off label use [Unknown]
  - Drug effective for unapproved indication [Unknown]
